FAERS Safety Report 23841999 (Version 1)
Quarter: 2024Q2

REPORT INFORMATION
  Report Type: Spontaneous
  Country: US (occurrence: US)
  Receive Date: 20240510
  Receipt Date: 20240510
  Transmission Date: 20240716
  Serious: Yes (Hospitalization)
  Sender: FDA-Public Use
  Company Number: US-LEADINGPHARMA-US-2024LEASPO00124

PATIENT
  Age: 67 Year
  Sex: Female

DRUGS (1)
  1. HYDROCHLOROTHIAZIDE [Suspect]
     Active Substance: HYDROCHLOROTHIAZIDE
     Indication: Product used for unknown indication
     Route: 065

REACTIONS (11)
  - Rash erythematous [Unknown]
  - Rash papular [Unknown]
  - Pain in jaw [Unknown]
  - Strabismus [Unknown]
  - Dyschromatopsia [Unknown]
  - Vitreous floaters [Unknown]
  - Eye movement disorder [Unknown]
  - Photosensitivity reaction [Unknown]
  - Eye pain [Unknown]
  - Rash [Unknown]
  - Headache [Recovered/Resolved]
